FAERS Safety Report 6742751-X (Version None)
Quarter: 2010Q2

REPORT INFORMATION
  Report Type: 
  Country: None (occurrence: None)
  Receive Date: 20100526
  Receipt Date: 20100511
  Transmission Date: 20101027
  Serious: Yes (Other)
  Sender: FDA-Public Use
  Company Number: DE-GENENTECH-301058

PATIENT
  Sex: Male
  Weight: 80 kg

DRUGS (6)
  1. MABTHERA [Suspect]
     Indication: BLOOD DISORDER
     Dosage: 700 MG, UNK
     Route: 042
     Dates: start: 20100413
  2. ASPIRIN [Concomitant]
     Indication: CORONARY ARTERY DISEASE
     Dosage: 100 MG, QD
     Route: 048
  3. SIMVASTATIN [Concomitant]
     Indication: CORONARY ARTERY DISEASE
     Dosage: 20 MG, UNK
     Route: 048
  4. ENALAPRIL MALEATE [Concomitant]
     Indication: CORONARY ARTERY DISEASE
     Dosage: 5 MG, UNK
     Route: 048
  5. PARACETAMOL [Concomitant]
     Indication: PREMEDICATION
     Dosage: 1 G, UNK
     Route: 048
     Dates: start: 20100412
  6. CLEMASTINE FUMARATE [Concomitant]
     Indication: PREMEDICATION
     Dosage: 1 DF, UNK
     Route: 042
     Dates: start: 20100413

REACTIONS (2)
  - HYPOTENSION [None]
  - MUSCLE SPASMS [None]
